FAERS Safety Report 18682430 (Version 4)
Quarter: 2021Q1

REPORT INFORMATION
  Report Type: Spontaneous
  Country: US (occurrence: US)
  Receive Date: 20201230
  Receipt Date: 20210211
  Transmission Date: 20210419
  Serious: No
  Sender: FDA-Public Use
  Company Number: US-SA-2020SA359018

PATIENT
  Age: 13 Year
  Sex: Male

DRUGS (2)
  1. DUPIXENT [Suspect]
     Active Substance: DUPILUMAB
     Indication: ECZEMA
     Dosage: 300 MG, QOW
     Route: 058
     Dates: start: 20201015
  2. ALBUTEROL SULFATE. [Concomitant]
     Active Substance: ALBUTEROL SULFATE
     Dosage: UNK

REACTIONS (3)
  - Injection site haemorrhage [Unknown]
  - Drug dose omission by device [Unknown]
  - Device use error [Unknown]

NARRATIVE: CASE EVENT DATE: 20201212
